FAERS Safety Report 8598360-3 (Version None)
Quarter: 2012Q3

REPORT INFORMATION
  Report Type: 
  Country: None (occurrence: None)
  Receive Date: 20120806
  Receipt Date: 20120806
  Transmission Date: 20120928
  Serious: Yes (Hospitalization)
  Sender: FDA-Public Use
  Company Number: None

PATIENT
  Sex: Male
  Weight: 88.3 kg

DRUGS (1)
  1. GEMCITABINE HYDROCHLORIDE [Suspect]
     Dosage: 6000 MG
     Dates: end: 20120725

REACTIONS (3)
  - PANCYTOPENIA [None]
  - ESCHERICHIA URINARY TRACT INFECTION [None]
  - BLOOD CULTURE POSITIVE [None]
